FAERS Safety Report 22397241 (Version 1)
Quarter: 2023Q2

REPORT INFORMATION
  Report Type: Spontaneous
  Country: PT (occurrence: PT)
  Receive Date: 20230602
  Receipt Date: 20230602
  Transmission Date: 20230722
  Serious: Yes (Death, Other)
  Sender: FDA-Public Use
  Company Number: PT-EMA-DD-20230510-7207990-070942

PATIENT
  Age: 18 Year
  Sex: Male
  Weight: 65 kg

DRUGS (9)
  1. VINCRISTINE SULFATE [Suspect]
     Active Substance: VINCRISTINE SULFATE
     Indication: Acute lymphocytic leukaemia
     Dosage: START DATE: JUN-2020, AS A PART OF 2ND LINE-HIPER-CVAD REGIMEN
     Route: 065
  2. INOTUZUMAB OZOGAMICIN [Suspect]
     Active Substance: INOTUZUMAB OZOGAMICIN
     Indication: Acute lymphocytic leukaemia
     Dosage: START DATE: OCT-2020 (INCOMPLETE BECAUSE OF INFECTION)
     Route: 065
  3. INOTUZUMAB OZOGAMICIN [Suspect]
     Active Substance: INOTUZUMAB OZOGAMICIN
     Indication: Acute lymphocytic leukaemia
     Dosage: UNK
     Dates: start: 202009, end: 202010
  4. RITUXIMAB [Suspect]
     Active Substance: RITUXIMAB
     Indication: Acute lymphocytic leukaemia
     Dosage: START DATE: JUN-2020, COMBINED WITH 2ND LINE-HIPER-CVAD REGIMEN
     Route: 065
  5. CYTARABINE [Suspect]
     Active Substance: CYTARABINE
     Indication: Hyperleukocytosis
     Dosage: START DATE: 2020 (1 GR)
     Route: 065
  6. CYCLOPHOSPHAMIDE [Suspect]
     Active Substance: CYCLOPHOSPHAMIDE
     Indication: Acute lymphocytic leukaemia
     Dosage: START DATE: JUN-2020, AS A PART OF 2ND LINE-HIPER-CVAD REGIMEN
     Route: 065
  7. DEXAMETHASONE [Suspect]
     Active Substance: DEXAMETHASONE
     Indication: Acute lymphocytic leukaemia
     Dosage: START DATE: JUN-2020, AS A PART OF 2ND LINE-HIPER-CVAD REGIMEN
  8. ADRIAMYCIN [Suspect]
     Active Substance: DOXORUBICIN HYDROCHLORIDE
     Indication: Acute lymphocytic leukaemia
     Dosage: START DATE: JUN-2020, AS A PART OF 2ND LINE-HYPER-CVAD REGIMEN
  9. DEXTROMETHORPHAN [Suspect]
     Active Substance: DEXTROMETHORPHAN
     Indication: Hyperleukocytosis
     Dosage: START DATE:2020
     Route: 065

REACTIONS (9)
  - Pneumonia necrotising [Fatal]
  - Cellulitis [Fatal]
  - Corynebacterium infection [Fatal]
  - Sepsis [Fatal]
  - Subdural haematoma [Unknown]
  - Neutropenia [Unknown]
  - Febrile neutropenia [Unknown]
  - Hyperleukocytosis [Unknown]
  - COVID-19 [Fatal]

NARRATIVE: CASE EVENT DATE: 20200101
